FAERS Safety Report 8186612-0 (Version None)
Quarter: 2012Q1

REPORT INFORMATION
  Report Type: 
  Country: None (occurrence: None)
  Receive Date: 20120306
  Receipt Date: 20120227
  Transmission Date: 20120608
  Serious: Yes (Hospitalization, Other)
  Sender: FDA-Public Use
  Company Number: US-BAYER-2011-048023

PATIENT
  Age: 21 Year
  Sex: Female
  Weight: 56.689 kg

DRUGS (7)
  1. DROSPIRENONE AND ETHINYL ESTRADIOL [Suspect]
     Indication: CONTRACEPTION
     Dosage: UNK
     Dates: start: 20080914, end: 20081016
  2. YASMIN [Suspect]
     Dosage: UNK
     Dates: start: 20090423, end: 20090701
  3. YASMIN [Suspect]
     Indication: CONTRACEPTION
     Dosage: UNK
     Dates: start: 20070928, end: 20071201
  4. YASMIN [Suspect]
     Dosage: UNK
     Dates: start: 20080316, end: 20080416
  5. MOTRIN [Concomitant]
     Route: 048
  6. IBUPROFEN (ADVIL) [Concomitant]
     Route: 048
  7. ACETAMINOPHEN [Concomitant]
     Indication: MIGRAINE
     Route: 048

REACTIONS (8)
  - INJURY [None]
  - CHOLELITHIASIS [None]
  - PAIN [None]
  - ANXIETY [None]
  - EMOTIONAL DISORDER [None]
  - GALLBLADDER DISORDER [None]
  - FEAR [None]
  - ANHEDONIA [None]
